FAERS Safety Report 6125117-5 (Version None)
Quarter: 2009Q1

REPORT INFORMATION
  Report Type: 
  Country: None (occurrence: None)
  Receive Date: 20090319
  Receipt Date: 20090316
  Transmission Date: 20090719
  Serious: Yes (Other)
  Sender: FDA-Public Use
  Company Number: US-ABBOTT-08P-163-0491316-00

PATIENT
  Sex: Female
  Weight: 81.72 kg

DRUGS (13)
  1. HUMIRA [Suspect]
     Indication: RHEUMATOID ARTHRITIS
     Route: 058
     Dates: start: 20030101, end: 20080401
  2. HUMIRA [Suspect]
     Dates: start: 20080401, end: 20081001
  3. HUMIRA [Suspect]
     Dates: start: 20081001
  4. FOSAMAX [Concomitant]
     Indication: BONE DISORDER
     Dates: start: 20081001
  5. FORTICAL [Concomitant]
     Indication: BONE DISORDER
     Dosage: NASAL SPRAY 1 ALTERNATE SIDE DAILY
     Route: 045
     Dates: start: 20080901
  6. VIT D [Concomitant]
     Indication: DRUG USE FOR UNKNOWN INDICATION
  7. MULTI-VITAMIN [Concomitant]
     Indication: DRUG USE FOR UNKNOWN INDICATION
  8. CAL PLUS D [Concomitant]
     Indication: DRUG USE FOR UNKNOWN INDICATION
  9. ALBUTEROL [Concomitant]
     Indication: DRUG USE FOR UNKNOWN INDICATION
     Dosage: PRN
     Route: 055
  10. OXYCODONE HCL [Concomitant]
     Indication: PAIN
  11. ATARAX [Concomitant]
     Indication: DRUG USE FOR UNKNOWN INDICATION
  12. ZOCOR [Concomitant]
     Indication: BLOOD CHOLESTEROL
  13. PREDNISONE [Concomitant]
     Indication: DRUG USE FOR UNKNOWN INDICATION

REACTIONS (3)
  - ARTHRITIS [None]
  - LUNG NEOPLASM [None]
  - THORACIC VERTEBRAL FRACTURE [None]
